FAERS Safety Report 8416222-9 (Version None)
Quarter: 2012Q2

REPORT INFORMATION
  Report Type: 
  Country: None (occurrence: None)
  Receive Date: 20120606
  Receipt Date: 20120604
  Transmission Date: 20120825
  Serious: Yes (Hospitalization)
  Sender: FDA-Public Use
  Company Number: US-GENZYME-CLOF-1002165

PATIENT
  Age: 66 Year
  Sex: Male

DRUGS (1)
  1. CLOLAR [Suspect]
     Indication: ACUTE MYELOID LEUKAEMIA
     Dosage: 3 MG, QD
     Route: 048
     Dates: start: 20120418, end: 20120508

REACTIONS (2)
  - BRADYCARDIA [None]
  - FEBRILE NEUTROPENIA [None]
